FAERS Safety Report 5131518-4 (Version None)
Quarter: 2006Q4

REPORT INFORMATION
  Report Type: 
  Country: None (occurrence: None)
  Receive Date: 20061020
  Receipt Date: 20061016
  Transmission Date: 20070319
  Serious: Yes (Hospitalization)
  Sender: FDA-Public Use
  Company Number: NL-SANOFI-SYNTHELABO-F01200602129

PATIENT
  Sex: Male

DRUGS (8)
  1. NYSTATIN [Concomitant]
     Dosage: UNK
  2. PANTOPRAZOLE SODIUM [Concomitant]
  3. DEXAMETHASONE TAB [Concomitant]
     Route: 065
  4. MS CONTIN [Concomitant]
     Route: 065
  5. CETUXIMAB [Suspect]
     Dosage: 400 MG/M2 DAY 1 OF CYCLE 1, THEREAFTER 250 MG/M2 WEEKLY
     Route: 041
     Dates: start: 20061004, end: 20061004
  6. BEVACIZUMAB [Suspect]
     Route: 041
     Dates: start: 20060607, end: 20060607
  7. CAPECITABINE [Suspect]
     Dosage: DAYS 1-14 (1250 MG/M2 AFTER CYCLE 6)
     Route: 048
     Dates: start: 20061008
  8. OXALIPLATIN [Suspect]
     Indication: COLORECTAL CANCER
     Route: 041
     Dates: start: 20060927, end: 20060927

REACTIONS (1)
  - OESOPHAGITIS [None]
